FAERS Safety Report 23823379 (Version 15)
Quarter: 2025Q3

REPORT INFORMATION
  Report Type: Report from Study
  Country: US (occurrence: US)
  Receive Date: 20240507
  Receipt Date: 20250707
  Transmission Date: 20251021
  Serious: Yes (Hospitalization, Other)
  Sender: TAKEDA
  Company Number: US-TAKEDA-2023TUS116589

PATIENT
  Sex: Male

DRUGS (1)
  1. MARIBAVIR [Suspect]
     Active Substance: MARIBAVIR
     Indication: Cytomegalovirus infection
     Dosage: 400 MILLIGRAM, BID
     Dates: start: 20231129

REACTIONS (9)
  - Cytomegalovirus infection reactivation [Unknown]
  - Lower respiratory tract infection [Unknown]
  - Pruritus [Unknown]
  - Postoperative wound infection [Unknown]
  - Adverse food reaction [Unknown]
  - Illness [Recovering/Resolving]
  - Decreased appetite [Unknown]
  - Dysgeusia [Recovered/Resolved]
  - Taste disorder [Not Recovered/Not Resolved]
